FAERS Safety Report 9123359 (Version 1)
Quarter: 2013Q1

REPORT INFORMATION
  Report Type: Spontaneous
  Country: US (occurrence: US)
  Receive Date: 20130115
  Receipt Date: 20130115
  Transmission Date: 20140127
  Serious: Yes (Other)
  Sender: FDA-Public Use
  Company Number: US-RB-048131-13

PATIENT
  Age: 24 Month
  Sex: Male

DRUGS (2)
  1. MUCINEX CHILDREN COUGH LIQUID CHERRY (GUAIFENESIN) [Suspect]
     Indication: PRODUCT USED FOR UNKNOWN INDICATION
     Route: 048
     Dates: start: 20130101
  2. MUCINEX CHILDREN COUGH LIQUID CHERRY (DEXTROMETHORPHAN HYDROBROMIDE) [Suspect]

REACTIONS (2)
  - Epistaxis [Not Recovered/Not Resolved]
  - Accidental exposure to product by child [Unknown]
